FAERS Safety Report 16333271 (Version 4)
Quarter: 2019Q3

REPORT INFORMATION
  Report Type: Report from Study
  Country: ZA (occurrence: ZA)
  Receive Date: 20190520
  Receipt Date: 20190724
  Transmission Date: 20191004
  Serious: Yes (Hospitalization)
  Sender: FDA-Public Use
  Company Number: PHHY2019ZA111455

PATIENT
  Sex: Female

DRUGS (2)
  1. METFORMIN HYDROCHLORIDE SANDOZ [Suspect]
     Active Substance: METFORMIN HYDROCHLORIDE
     Indication: DIABETES MELLITUS
     Dosage: 850 MG, (STARTED 6-7 YEARS AGO)
     Route: 048
  2. COXLEON [Suspect]
     Active Substance: CELECOXIB
     Indication: PAIN
     Dosage: 200 MG, UNK
     Route: 048

REACTIONS (8)
  - Injury [Unknown]
  - Intervertebral disc protrusion [Not Recovered/Not Resolved]
  - Fall [Unknown]
  - Fibromyalgia [Unknown]
  - Blood glucose decreased [Not Recovered/Not Resolved]
  - Arthropathy [Unknown]
  - Dizziness [Not Recovered/Not Resolved]
  - Device related infection [Not Recovered/Not Resolved]
